FAERS Safety Report 8574666-9 (Version None)
Quarter: 2012Q3

REPORT INFORMATION
  Report Type: 
  Country: None (occurrence: None)
  Receive Date: 20120807
  Receipt Date: 20120725
  Transmission Date: 20120928
  Serious: Yes (Death)
  Sender: FDA-Public Use
  Company Number: DE-BRISTOL-MYERS SQUIBB COMPANY-16801938

PATIENT
  Age: 57 Year
  Sex: Male

DRUGS (8)
  1. ABATACEPT [Suspect]
     Indication: POLYARTHRITIS
     Dates: start: 20071201, end: 20080601
  2. GOLIMUMAB [Suspect]
     Indication: POLYARTHRITIS
     Dates: start: 20110301, end: 20110801
  3. ANAKINRA [Suspect]
     Indication: POLYARTHRITIS
     Dates: start: 20080801, end: 20081001
  4. TOCILIZUMAB [Suspect]
     Indication: POLYARTHRITIS
     Dates: start: 20090301, end: 20090601
  5. METHOTREXATE [Suspect]
     Indication: POLYARTHRITIS
     Dosage: NOV03-SEP08,MAY09-UNK
     Dates: start: 20031101
  6. SULFASALAZINE [Suspect]
     Indication: POLYARTHRITIS
     Dates: start: 20090701, end: 20110301
  7. ADALIMUMAB [Suspect]
     Indication: POLYARTHRITIS
     Dates: start: 20060801, end: 20070101
  8. CERTOLIZUMAB PEGOL [Suspect]
     Indication: POLYARTHRITIS
     Dates: start: 20110901, end: 20111001

REACTIONS (1)
  - METASTATIC BRONCHIAL CARCINOMA [None]
